FAERS Safety Report 20096077 (Version 1)
Quarter: 2021Q4

REPORT INFORMATION
  Report Type: Spontaneous
  Country: US (occurrence: None)
  Receive Date: 20211122
  Receipt Date: 20211122
  Transmission Date: 20220303
  Serious: No
  Sender: FDA-Public Use
  Company Number: 2021A799331

PATIENT
  Age: 862 Month
  Sex: Male
  Weight: 102.1 kg

DRUGS (1)
  1. BUDESONIDE\FORMOTEROL\GLYCOPYRRONIUM [Suspect]
     Active Substance: BUDESONIDE\FORMOTEROL\GLYCOPYRRONIUM
     Indication: Asthma
     Dosage: 160MCG/9MCG/4.8MCG VIA INHALATION, 2 PUFFS TWICE DAILY
     Route: 055
     Dates: start: 202110

REACTIONS (3)
  - Back pain [Not Recovered/Not Resolved]
  - Dysphonia [Unknown]
  - Product use issue [Unknown]

NARRATIVE: CASE EVENT DATE: 20211001
